FAERS Safety Report 17350612 (Version 11)
Quarter: 2022Q2

REPORT INFORMATION
  Report Type: Other
  Country: US (occurrence: US)
  Receive Date: 20200130
  Receipt Date: 20220617
  Transmission Date: 20220721
  Serious: Yes (Hospitalization, Other)
  Sender: FDA-Public Use
  Company Number: US-ROCHE-2532294

PATIENT
  Sex: Female
  Weight: 122.58 kg

DRUGS (22)
  1. OCREVUS [Suspect]
     Active Substance: OCRELIZUMAB
     Indication: Primary progressive multiple sclerosis
     Dosage: 23/AUG/2020 (DATE OF TREATMENT)
     Route: 042
     Dates: start: 20190813
  2. OCREVUS [Suspect]
     Active Substance: OCRELIZUMAB
     Route: 042
     Dates: start: 201906
  3. OCREVUS [Suspect]
     Active Substance: OCRELIZUMAB
     Route: 042
     Dates: start: 201907, end: 2019
  4. OCREVUS [Suspect]
     Active Substance: OCRELIZUMAB
     Route: 042
     Dates: start: 201912
  5. OCREVUS [Suspect]
     Active Substance: OCRELIZUMAB
     Route: 042
     Dates: start: 20201016
  6. DIAZEPAM [Suspect]
     Active Substance: DIAZEPAM
     Indication: Anxiety
     Dosage: 1 TO 2 TIMES PER DAY AS NEEDED
     Route: 048
     Dates: start: 2005
  7. BACLOFEN [Concomitant]
     Active Substance: BACLOFEN
     Indication: Muscle spasms
     Dosage: ONGOING:YES
     Route: 048
     Dates: start: 2009
  8. TOPIRAMATE [Concomitant]
     Active Substance: TOPIRAMATE
     Indication: Migraine
     Route: 048
     Dates: start: 2014
  9. TOPIRAMATE [Concomitant]
     Active Substance: TOPIRAMATE
     Dosage: ONGOING
     Route: 048
     Dates: start: 20201208
  10. CYMBALTA [Concomitant]
     Active Substance: DULOXETINE HYDROCHLORIDE
     Indication: Depression
  11. LOSARTAN [Concomitant]
     Active Substance: LOSARTAN
     Indication: Hypertension
     Dosage: 25/12.5
     Route: 048
     Dates: start: 2009
  12. LOSARTAN [Concomitant]
     Active Substance: LOSARTAN
     Dosage: ONGOING
     Route: 048
     Dates: start: 20201020
  13. HYDROCHLOROTHIAZIDE\LOSARTAN [Concomitant]
     Active Substance: HYDROCHLOROTHIAZIDE\LOSARTAN
     Indication: Hypertension
     Dosage: 50MG/12.5MG
     Route: 048
  14. EXCEDRIN MIGRAINE [Concomitant]
     Active Substance: ACETAMINOPHEN\ASPIRIN\CAFFEINE
     Indication: Migraine
     Dosage: CAFFEINE 65MG/ASPIRIN 250MG/ACETAMINOPHEN 250MG
     Route: 048
  15. VITAMIN B12 [Concomitant]
     Active Substance: CYANOCOBALAMIN
     Indication: Multiple sclerosis
  16. VITAMIN D3 [Concomitant]
     Active Substance: CHOLECALCIFEROL
     Route: 048
  17. CINNAMON [Concomitant]
     Active Substance: CINNAMON
     Route: 048
  18. MAGNESIUM [Concomitant]
     Active Substance: MAGNESIUM
     Indication: Blood magnesium decreased
     Route: 048
  19. POTASSIUM [Concomitant]
     Active Substance: POTASSIUM
     Indication: Blood potassium decreased
     Route: 048
  20. HERBALS\TURMERIC [Concomitant]
     Active Substance: HERBALS\TURMERIC
     Indication: Arthralgia
     Route: 048
  21. VITAMIN C [Concomitant]
     Active Substance: ASCORBIC ACID
     Route: 048
  22. HYDROCHLOROTHIAZIDE [Concomitant]
     Active Substance: HYDROCHLOROTHIAZIDE
     Indication: Hypertension
     Dosage: ONGOING
     Route: 048
     Dates: start: 20201020

REACTIONS (23)
  - Multiple sclerosis relapse [Not Recovered/Not Resolved]
  - Pneumonia [Recovered/Resolved]
  - Facial paralysis [Unknown]
  - Bronchitis [Recovered/Resolved]
  - Headache [Not Recovered/Not Resolved]
  - Cough [Recovered/Resolved]
  - Chills [Recovered/Resolved]
  - Pyrexia [Recovered/Resolved]
  - Influenza [Recovered/Resolved]
  - Upper respiratory tract infection [Recovered/Resolved]
  - Atypical pneumonia [Recovered/Resolved]
  - Paraesthesia [Not Recovered/Not Resolved]
  - Dysarthria [Recovered/Resolved]
  - Facial paresis [Unknown]
  - Panic attack [Recovered/Resolved]
  - Asthenia [Unknown]
  - COVID-19 [Recovered/Resolved]
  - Post-traumatic stress disorder [Unknown]
  - Pneumonia fungal [Unknown]
  - Migraine [Not Recovered/Not Resolved]
  - Ovarian cyst [Recovered/Resolved]
  - COVID-19 pneumonia [Recovered/Resolved]
  - Infusion related reaction [Recovered/Resolved]

NARRATIVE: CASE EVENT DATE: 20190101
